FAERS Safety Report 8086808-2 (Version None)
Quarter: 2012Q1

REPORT INFORMATION
  Report Type: 
  Country: None (occurrence: None)
  Receive Date: 20120128
  Receipt Date: 20110603
  Transmission Date: 20120608
  Serious: Yes (Hospitalization, Other)
  Sender: FDA-Public Use
  Company Number: US-ABBOTT-11P-163-0726864-00

PATIENT
  Age: 55 Year
  Sex: Female
  Weight: 86.26 kg

DRUGS (4)
  1. HUMIRA [Suspect]
     Indication: RHEUMATOID ARTHRITIS
     Dates: start: 20090101, end: 20100101
  2. HUMIRA [Suspect]
     Route: 058
     Dates: start: 20110518
  3. METHOTREXATE [Concomitant]
     Indication: PRODUCT USED FOR UNKNOWN INDICATION
  4. HYDROXYCHLOROQUINE SULFATE [Concomitant]
     Indication: PRODUCT USED FOR UNKNOWN INDICATION

REACTIONS (6)
  - INCORRECT ROUTE OF DRUG ADMINISTRATION [None]
  - ARTHRALGIA [None]
  - BACK PAIN [None]
  - PNEUMONIA [None]
  - STAPHYLOCOCCAL INFECTION [None]
  - WRONG TECHNIQUE IN DRUG USAGE PROCESS [None]
